FAERS Safety Report 19158258 (Version 1)
Quarter: 2021Q2

REPORT INFORMATION
  Report Type: Spontaneous
  Country: IR (occurrence: IR)
  Receive Date: 20210420
  Receipt Date: 20210420
  Transmission Date: 20210717
  Serious: Yes (Death)
  Sender: FDA-Public Use
  Company Number: IR-009507513-2104IRN004151

PATIENT
  Age: 10 Year
  Sex: Male

DRUGS (5)
  1. VORICONAZOLE. [Suspect]
     Active Substance: VORICONAZOLE
     Dosage: 200 MG/DAY
  2. AMPHOTERICIN B. [Suspect]
     Active Substance: AMPHOTERICIN B
     Indication: ASPERGILLUS INFECTION
     Dosage: 1 MILLIGRAM/KILOGRAM/DAY
  3. VORICONAZOLE. [Suspect]
     Active Substance: VORICONAZOLE
     Indication: ASPERGILLUS INFECTION
     Dosage: 9 MILLIGRAM/KILOGRAM/DAY
  4. CASPOFUNGIN ACETATE. [Suspect]
     Active Substance: CASPOFUNGIN ACETATE
     Indication: ASPERGILLUS INFECTION
     Dosage: 50 MICROGRAM PER SQ METER
  5. INTERFERON GAMMA NOS [Suspect]
     Active Substance: INTERFERON GAMMA
     Indication: ASPERGILLUS INFECTION

REACTIONS (1)
  - Therapy non-responder [Fatal]
